FAERS Safety Report 5390398-2 (Version None)
Quarter: 2007Q3

REPORT INFORMATION
  Report Type: 
  Country: None (occurrence: None)
  Receive Date: 20070718
  Receipt Date: 20070215
  Transmission Date: 20080115
  Serious: No
  Sender: FDA-Public Use
  Company Number: US-KINGPHARMUSA00001-K200700187

PATIENT

DRUGS (2)
  1. LEVOXYL [Suspect]
     Dosage: 125 MCG, UNK
     Dates: start: 19970101
  2. CYTOMEL [Concomitant]
     Dosage: 25 UNK, UNK
     Dates: start: 20070201

REACTIONS (1)
  - WEIGHT INCREASED [None]
